FAERS Safety Report 12358427 (Version 3)
Quarter: 2016Q3

REPORT INFORMATION
  Report Type: Spontaneous
  Country: US (occurrence: US)
  Receive Date: 20160512
  Receipt Date: 20160809
  Transmission Date: 20161109
  Serious: No
  Sender: FDA-Public Use
  Company Number: US-PFIZER INC-2016212176

PATIENT
  Age: 40 Year
  Sex: Female

DRUGS (4)
  1. DULOXETINE HCL [Concomitant]
     Active Substance: DULOXETINE HYDROCHLORIDE
     Indication: ANXIETY
  2. BUTALBITAL, ACETAMINOPHEN, AND CAFFEINE [Concomitant]
     Active Substance: ACETAMINOPHEN\BUTALBITAL\CAFFEINE
     Dosage: UNK (ETAMINOPHEN 325 MG-CAFFEINE 40 MG-BUTALBITAL 50 MG)
     Dates: start: 201505
  3. DULOXETINE HCL [Concomitant]
     Active Substance: DULOXETINE HYDROCHLORIDE
     Indication: DEPRESSION
     Dosage: 60 MG, 1X/DAY
     Dates: start: 201601
  4. NIFEDIPINE. [Suspect]
     Active Substance: NIFEDIPINE
     Dosage: UNK

REACTIONS (5)
  - Headache [Unknown]
  - Joint injury [Unknown]
  - Condition aggravated [Unknown]
  - Neck injury [Unknown]
  - Thoracic outlet syndrome [Unknown]
